FAERS Safety Report 8539873-X (Version None)
Quarter: 2012Q3

REPORT INFORMATION
  Report Type: 
  Country: None (occurrence: None)
  Receive Date: 20120726
  Receipt Date: 20120723
  Transmission Date: 20120928
  Serious: No
  Sender: FDA-Public Use
  Company Number: US-PFIZER INC-2012142215

PATIENT
  Sex: Male

DRUGS (1)
  1. BENZATHINE PENICILLIN G [Suspect]
     Dosage: UNK
     Dates: start: 19820101, end: 19820101

REACTIONS (1)
  - NO ADVERSE EVENT [None]
